FAERS Safety Report 12952928 (Version 1)
Quarter: 2016Q4

REPORT INFORMATION
  Report Type: Spontaneous
  Country: US (occurrence: US)
  Receive Date: 20161117
  Receipt Date: 20161117
  Transmission Date: 20170207
  Serious: Yes (Other)
  Sender: FDA-Public Use
  Company Number: US-NOVOPROD-512356

PATIENT
  Age: 53 Year
  Sex: Male
  Weight: 129.25 kg

DRUGS (1)
  1. NOVOLOG [Suspect]
     Active Substance: INSULIN ASPART
     Indication: TYPE 2 DIABETES MELLITUS
     Dosage: SLIDING SCALE, USUALLY 8-10U, IF MORE NEEDED THEN 15-20U
     Route: 058
     Dates: start: 2012

REACTIONS (2)
  - Device failure [Recovered/Resolved]
  - Blood glucose increased [Recovered/Resolved]

NARRATIVE: CASE EVENT DATE: 201603
